FAERS Safety Report 7957629-3 (Version None)
Quarter: 2011Q4

REPORT INFORMATION
  Report Type: 
  Country: None (occurrence: None)
  Receive Date: 20111205
  Receipt Date: 20111125
  Transmission Date: 20120403
  Serious: Yes (Other)
  Sender: FDA-Public Use
  Company Number: PHHY2011PL93542

PATIENT
  Age: 49 Year
  Sex: Female

DRUGS (4)
  1. CYCLOSPORINE [Suspect]
     Indication: RENAL TRANSPLANT
  2. PREDNISONE TAB [Concomitant]
  3. AZATHIOPRINE [Concomitant]
     Indication: IMMUNOSUPPRESSION
  4. MYCOPHENOLATE MOFETIL [Concomitant]
     Indication: IMMUNOSUPPRESSION

REACTIONS (7)
  - HEPATIC ENZYME INCREASED [None]
  - HEPATITIS C [None]
  - DIABETES MELLITUS [None]
  - AZOTAEMIA [None]
  - BLOOD BILIRUBIN INCREASED [None]
  - UTERINE NEOPLASM [None]
  - FLUID RETENTION [None]
